FAERS Safety Report 5830910-X (Version None)
Quarter: 2008Q3

REPORT INFORMATION
  Report Type: 
  Country: None (occurrence: None)
  Receive Date: 20080801
  Receipt Date: 20080130
  Transmission Date: 20090109
  Serious: No
  Sender: FDA-Public Use
  Company Number: US-BRISTOL-MYERS SQUIBB COMPANY-14059802

PATIENT
  Sex: Female

DRUGS (1)
  1. COUMADIN [Suspect]
     Dosage: THERAPY DURATION - 365.38799768519, UNITS NOT PROVIDED.
     Route: 048
     Dates: start: 20080130, end: 20080130

REACTIONS (1)
  - HAEMORRHAGE [None]
